FAERS Safety Report 17078904 (Version 1)
Quarter: 2019Q4

REPORT INFORMATION
  Report Type: Other
  Country: IT (occurrence: IT)
  Receive Date: 20191127
  Receipt Date: 20191127
  Transmission Date: 20200122
  Serious: Yes (Other)
  Sender: FDA-Public Use
  Company Number: IT-ASTELLAS-2019US046751

PATIENT
  Age: 82 Year
  Sex: Male
  Weight: 65 kg

DRUGS (1)
  1. XTANDI [Suspect]
     Active Substance: ENZALUTAMIDE
     Indication: PROSTATE CANCER METASTATIC
     Route: 048
     Dates: start: 20171219, end: 20191105

REACTIONS (2)
  - Underdose [Unknown]
  - Pancytopenia [Unknown]

NARRATIVE: CASE EVENT DATE: 20171219
